FAERS Safety Report 4277771-0 (Version None)
Quarter: 2004Q1

REPORT INFORMATION
  Report Type: 
  Country: None (occurrence: None)
  Receive Date: 20040121
  Receipt Date: 20040108
  Transmission Date: 20041129
  Serious: Yes (Other)
  Sender: FDA-Public Use
  Company Number: 2003126625

PATIENT
  Age: 47 Year
  Sex: Male

DRUGS (4)
  1. VIAGRA [Suspect]
     Indication: ILL-DEFINED DISORDER
     Dosage: ORAL
     Route: 048
     Dates: start: 20030901, end: 20031220
  2. CARBAZOCHROME SODIUM SULFONATE (CARBAZOCHROME) [Concomitant]
  3. PANCREAS EXTRACT (PANCREAS EXTRACT) [Concomitant]
  4. INSULIN [Concomitant]

REACTIONS (5)
  - DIABETIC COMPLICATION [None]
  - RETINAL ARTERY OCCLUSION [None]
  - RETINAL HAEMORRHAGE [None]
  - RETINAL VEIN OCCLUSION [None]
  - SELF-MEDICATION [None]
